FAERS Safety Report 11976909 (Version 2)
Quarter: 2016Q1

REPORT INFORMATION
  Report Type: Spontaneous
  Country: IT (occurrence: IT)
  Receive Date: 20160129
  Receipt Date: 20160205
  Transmission Date: 20160526
  Serious: Yes (Other)
  Sender: FDA-Public Use
  Company Number: IT-MYLANLABS-2016M1003633

PATIENT

DRUGS (2)
  1. LEVOFLOXACINE MYLAN 500 MG, COMPRIM? PELLICUL? S?CABLE [Suspect]
     Active Substance: LEVOFLOXACIN
     Dosage: 500 MG, QD
     Route: 048
  2. LEVOFLOXACINE MYLAN 500 MG, COMPRIM? PELLICUL? S?CABLE [Suspect]
     Active Substance: LEVOFLOXACIN
     Indication: BRONCHITIS
     Dosage: 500 MG, BID
     Route: 048

REACTIONS (5)
  - Arthralgia [Not Recovered/Not Resolved]
  - Chest pain [Recovering/Resolving]
  - Joint swelling [Not Recovered/Not Resolved]
  - Pharyngeal oedema [Recovering/Resolving]
  - Throat irritation [Recovering/Resolving]

NARRATIVE: CASE EVENT DATE: 20160110
